FAERS Safety Report 4267606-4 (Version None)
Quarter: 2004Q1

REPORT INFORMATION
  Report Type: 
  Country: None (occurrence: None)
  Receive Date: 20040109
  Receipt Date: 20031007
  Transmission Date: 20041129
  Serious: No
  Sender: FDA-Public Use
  Company Number: US-GLAXOSMITHKLINE-A0429136A

PATIENT

DRUGS (1)
  1. WELLBUTRIN [Suspect]
     Indication: DEPRESSION
     Route: 065

REACTIONS (4)
  - HEADACHE [None]
  - LOCAL SWELLING [None]
  - MUSCULOSKELETAL STIFFNESS [None]
  - RASH PRURITIC [None]
